FAERS Safety Report 5223795-6 (Version None)
Quarter: 2007Q1

REPORT INFORMATION
  Report Type: 
  Country: None (occurrence: None)
  Receive Date: 20070130
  Receipt Date: 20070119
  Transmission Date: 20070707
  Serious: Yes (Hospitalization)
  Sender: FDA-Public Use
  Company Number: FR-BAYER-200710062BFR

PATIENT
  Age: 72 Year
  Sex: Female

DRUGS (7)
  1. MOXIFLOXACIN HYDROCHLORIDE [Suspect]
     Indication: PNEUMONIA
     Dosage: TOTAL DAILY DOSE: 400 MG  UNIT DOSE: 400 MG
     Route: 048
     Dates: start: 20070108, end: 20070117
  2. ROCEPHIN [Concomitant]
     Indication: PNEUMONIA
     Dates: end: 20070108
  3. BETASERC [Concomitant]
     Indication: UNEVALUABLE EVENT
     Route: 065
  4. NEO-MERCAZOLE TAB [Concomitant]
     Indication: UNEVALUABLE EVENT
     Route: 065
  5. INSULIN [Concomitant]
     Indication: UNEVALUABLE EVENT
     Route: 065
  6. LASIX [Concomitant]
     Indication: UNEVALUABLE EVENT
     Route: 065
  7. HYPERIUM [Concomitant]
     Indication: UNEVALUABLE EVENT
     Route: 065

REACTIONS (2)
  - INTERNATIONAL NORMALISED RATIO INCREASED [None]
  - VASCULAR PURPURA [None]
